FAERS Safety Report 8529385-1 (Version None)
Quarter: 2012Q3

REPORT INFORMATION
  Report Type: 
  Country: None (occurrence: None)
  Receive Date: 20120723
  Receipt Date: 20120710
  Transmission Date: 20120928
  Serious: Yes (Disabling, Other)
  Sender: FDA-Public Use
  Company Number: FR-JNJFOC-20120212737

PATIENT
  Sex: Male
  Weight: 75 kg

DRUGS (3)
  1. ACETAMINOPHEN AND TRAMADOL HCL [Concomitant]
     Indication: PAIN
     Route: 065
  2. PREDNISOLONE [Concomitant]
     Indication: PRODUCT USED FOR UNKNOWN INDICATION
     Route: 065
  3. ZYTIGA [Suspect]
     Indication: PRODUCT USED FOR UNKNOWN INDICATION
     Route: 048
     Dates: start: 20120202, end: 20120221

REACTIONS (3)
  - PARALYSIS [None]
  - BONE PAIN [None]
  - PAIN IN EXTREMITY [None]
